FAERS Safety Report 5030774-0 (Version None)
Quarter: 2006Q2

REPORT INFORMATION
  Report Type: 
  Country: None (occurrence: None)
  Receive Date: 20060621
  Receipt Date: 20060613
  Transmission Date: 20061013
  Serious: Yes (Death, Life-Threatening, Hospitalization)
  Sender: FDA-Public Use
  Company Number: DE-ROCHE-451411

PATIENT
  Age: 46 Year
  Sex: Male

DRUGS (3)
  1. ZENAPAX [Suspect]
     Route: 048
     Dates: start: 20060515
  2. TACROLIMUS [Suspect]
     Route: 065
     Dates: start: 20060515, end: 20060521
  3. HYDROCORTISON [Concomitant]

REACTIONS (4)
  - COMPLICATIONS OF TRANSPLANTED LIVER [None]
  - MULTI-ORGAN FAILURE [None]
  - SEPSIS [None]
  - TACHYARRHYTHMIA [None]
